FAERS Safety Report 8020332-8 (Version None)
Quarter: 2012Q1

REPORT INFORMATION
  Report Type: 
  Country: None (occurrence: None)
  Receive Date: 20120103
  Receipt Date: 20111219
  Transmission Date: 20120608
  Serious: Yes (Hospitalization)
  Sender: FDA-Public Use
  Company Number: US-WATSON-2011-22407

PATIENT
  Age: 39 Year
  Sex: Female

DRUGS (1)
  1. PROGESTERONE IN OIL INJ [Suspect]
     Indication: INFERTILITY FEMALE
     Dosage: UNK UNK, UNK
     Route: 030
     Dates: start: 20101109, end: 20101123

REACTIONS (7)
  - EOSINOPHILIA [None]
  - ACUTE LUNG INJURY [None]
  - EOSINOPHILIC PNEUMONIA [None]
  - DYSPNOEA [None]
  - FIBRIN D DIMER INCREASED [None]
  - PLEURITIC PAIN [None]
  - LUNG INFILTRATION [None]
